FAERS Safety Report 10066249 (Version 1)
Quarter: 2014Q2

REPORT INFORMATION
  Report Type: Spontaneous
  Country: CA (occurrence: CA)
  Receive Date: 20140408
  Receipt Date: 20140408
  Transmission Date: 20141212
  Serious: Yes (Death)
  Sender: FDA-Public Use
  Company Number: US-ASTELLAS-2014US003456

PATIENT
  Age: 45 Year
  Sex: Male

DRUGS (5)
  1. AMBISOME [Suspect]
     Indication: MENINGITIS CRYPTOCOCCAL
     Dosage: UNK
     Route: 065
  2. ACYCLOVIR                          /00587301/ [Concomitant]
     Indication: HERPES SIMPLEX MENINGOENCEPHALITIS
     Dosage: UNK
     Route: 065
  3. CEFTRIAXONE [Concomitant]
     Indication: MENINGITIS BACTERIAL
     Dosage: UNK
     Route: 065
  4. VANCOMYCIN [Concomitant]
     Indication: MENINGITIS BACTERIAL
     Dosage: UNK
     Route: 065
  5. AMPICILLIN [Concomitant]
     Indication: MENINGITIS BACTERIAL
     Dosage: UNK
     Route: 065

REACTIONS (1)
  - Drug ineffective [Fatal]
